FAERS Safety Report 4905395-8 (Version None)
Quarter: 2006Q1

REPORT INFORMATION
  Report Type: 
  Country: None (occurrence: None)
  Receive Date: 20060207
  Receipt Date: 20060207
  Transmission Date: 20060701
  Serious: Yes (Hospitalization, Disabling)
  Sender: FDA-Public Use
  Company Number: None

PATIENT
  Age: 27 Year
  Sex: Male
  Weight: 99 kg

DRUGS (1)
  1. ZIPRASIDONE HCL [Suspect]
     Dates: start: 20050901

REACTIONS (2)
  - DYSTONIA [None]
  - MENTAL STATUS CHANGES [None]
